FAERS Safety Report 5866966-8 (Version None)
Quarter: 2008Q3

REPORT INFORMATION
  Report Type: 
  Country: None (occurrence: None)
  Receive Date: 20080828
  Receipt Date: 20080828
  Transmission Date: 20090109
  Serious: Yes (Hospitalization)
  Sender: FDA-Public Use
  Company Number: None

PATIENT
  Sex: Male
  Weight: 113.3 kg

DRUGS (4)
  1. TEMOZOLOMIDE [Suspect]
     Dosage: 4930MG
  2. PLAQUENIL [Suspect]
     Dosage: 20000 MG
  3. DEXAMETHASONE [Concomitant]
  4. NYSTATIN ORAL SOLUTION [Concomitant]

REACTIONS (8)
  - CONJUNCTIVAL DISORDER [None]
  - DIZZINESS [None]
  - HAEMOGLOBIN DECREASED [None]
  - HAEMORRHAGE [None]
  - HEADACHE [None]
  - NEUTROPHIL COUNT DECREASED [None]
  - PALLOR [None]
  - PLATELET COUNT DECREASED [None]
